FAERS Safety Report 17431388 (Version 18)
Quarter: 2021Q1

REPORT INFORMATION
  Report Type: Spontaneous
  Country: US (occurrence: US)
  Receive Date: 20200218
  Receipt Date: 20210318
  Transmission Date: 20210419
  Serious: No
  Sender: FDA-Public Use
  Company Number: US-PFIZER INC-2020072404

PATIENT
  Age: 87 Year
  Sex: Female
  Weight: 54.42 kg

DRUGS (2)
  1. PREMARIN [Suspect]
     Active Substance: ESTROGENS, CONJUGATED
     Indication: MENOPAUSAL SYMPTOMS
     Dosage: 0.625 MG, DAILY
     Route: 048
  2. PREMARIN [Suspect]
     Active Substance: ESTROGENS, CONJUGATED
     Dosage: 0.625 MG, CYCLIC (TAKE DAILY FOR 21 DAYS THEN DO NOT TAKE FOR 7 DAYS)
     Route: 048

REACTIONS (5)
  - Therapeutic response unexpected [Unknown]
  - Anxiety [Unknown]
  - Malaise [Unknown]
  - Product prescribing error [Unknown]
  - Productive cough [Unknown]
